FAERS Safety Report 25335664 (Version 1)
Quarter: 2025Q2

REPORT INFORMATION
  Report Type: Spontaneous
  Country: SA (occurrence: SA)
  Receive Date: 20250520
  Receipt Date: 20250520
  Transmission Date: 20250717
  Serious: No
  Sender: IPSEN BIOPHARMACEUTICALS, INC.
  Company Number: SA-IPSEN Group, Research and Development-2025-06922

PATIENT
  Sex: Female
  Weight: 18 kg

DRUGS (1)
  1. BYLVAY [Suspect]
     Active Substance: ODEVIXIBAT
     Indication: Alagille syndrome
     Dosage: 2 CAPSULES OF 1200 UG DAILY
     Route: 065

REACTIONS (4)
  - Alanine aminotransferase increased [Unknown]
  - Headache [Unknown]
  - Gamma-glutamyltransferase increased [Unknown]
  - Aspartate aminotransferase increased [Unknown]
